FAERS Safety Report 9007892 (Version 2)
Quarter: 2013Q4

REPORT INFORMATION
  Report Type: Spontaneous
  Country: US (occurrence: US)
  Receive Date: 20130111
  Receipt Date: 20131120
  Transmission Date: 20140711
  Serious: Yes (Other)
  Sender: FDA-Public Use
  Company Number: US-BAYER-2013-003371

PATIENT
  Age: 40 Year
  Sex: Female
  Weight: 61.5 kg

DRUGS (3)
  1. YAZ [Suspect]
  2. CEFUROXIME [Concomitant]
     Dosage: 500 MG
  3. ALBUTEROL [Concomitant]

REACTIONS (5)
  - Cholecystitis chronic [None]
  - Cholecystectomy [None]
  - Injury [None]
  - Pain [None]
  - Pain [None]
